FAERS Safety Report 9431725 (Version 1)
Quarter: 2013Q3

REPORT INFORMATION
  Report Type: Spontaneous
  Country: US (occurrence: US)
  Receive Date: 20130731
  Receipt Date: 20130731
  Transmission Date: 20140515
  Serious: No
  Sender: FDA-Public Use
  Company Number: US-BIOGENIDEC-2013BI070391

PATIENT
  Age: 45 Year
  Sex: Female

DRUGS (1)
  1. TYSABRI [Suspect]
     Indication: MULTIPLE SCLEROSIS
     Route: 042
     Dates: start: 20070620, end: 20081008

REACTIONS (10)
  - Influenza like illness [Recovered/Resolved]
  - Vertigo [Recovered/Resolved]
  - Skin discolouration [Unknown]
  - Thyroid mass [Recovered/Resolved]
  - Intracardiac mass [Unknown]
  - Breast enlargement [Unknown]
  - Poor venous access [Not Recovered/Not Resolved]
  - Amenorrhoea [Not Recovered/Not Resolved]
  - Nausea [Recovered/Resolved]
  - Pruritus [Recovered/Resolved]
